FAERS Safety Report 5413856-0 (Version None)
Quarter: 2007Q3

REPORT INFORMATION
  Report Type: 
  Country: None (occurrence: None)
  Receive Date: 20070814
  Receipt Date: 20070515
  Transmission Date: 20080115
  Serious: No
  Sender: FDA-Public Use
  Company Number: US-BRISTOL-MYERS SQUIBB COMPANY-13781182

PATIENT
  Sex: Male

DRUGS (2)
  1. REYATAZ [Suspect]
  2. SEROSTIM [Suspect]
     Indication: CACHEXIA
     Route: 042

REACTIONS (1)
  - VIRAL LOAD INCREASED [None]
